FAERS Safety Report 8043408-8 (Version None)
Quarter: 2012Q1

REPORT INFORMATION
  Report Type: 
  Country: None (occurrence: None)
  Receive Date: 20120112
  Receipt Date: 20120106
  Transmission Date: 20120608
  Serious: Yes (Other)
  Sender: FDA-Public Use
  Company Number: PHHY2012CA001339

PATIENT
  Age: 25 Year
  Sex: Male

DRUGS (1)
  1. PREDNISONE TAB [Suspect]
     Indication: SARCOIDOSIS
     Dosage: 50 MG, QD

REACTIONS (3)
  - PAIN IN EXTREMITY [None]
  - LIPOMA [None]
  - MUSCULAR WEAKNESS [None]
